FAERS Safety Report 5872100-0 (Version None)
Quarter: 2008Q3

REPORT INFORMATION
  Report Type: 
  Country: None (occurrence: None)
  Receive Date: 20080905
  Receipt Date: 20080902
  Transmission Date: 20090109
  Serious: Yes (Hospitalization)
  Sender: FDA-Public Use
  Company Number: B0531742A

PATIENT
  Age: 1 Day
  Sex: Male
  Weight: 2.4 kg

DRUGS (5)
  1. PAXIL [Suspect]
     Indication: EATING DISORDER
     Dosage: 40MG PER DAY
     Dates: start: 20070401, end: 20080730
  2. PAXIL [Suspect]
     Dosage: 40MG PER DAY
     Dates: start: 20080801, end: 20080806
  3. TRAZODONE HCL [Suspect]
     Indication: DRUG USE FOR UNKNOWN INDICATION
     Dates: end: 20080730
  4. LENDORMIN [Suspect]
     Indication: INSOMNIA
     Dosage: .25MG PER DAY
     Dates: start: 20080628, end: 20080731
  5. LENDORMIN [Suspect]
     Dosage: .25MG PER DAY
     Dates: start: 20080806, end: 20080806

REACTIONS (12)
  - BREATH SOUNDS ABNORMAL [None]
  - DRUG EXPOSURE DURING PREGNANCY [None]
  - DRUG EXPOSURE VIA BREAST MILK [None]
  - DRUG WITHDRAWAL SYNDROME NEONATAL [None]
  - FORMICATION [None]
  - HYPERREFLEXIA [None]
  - HYPERTONIA NEONATAL [None]
  - IRRITABILITY [None]
  - NEONATAL ASPHYXIA [None]
  - SMALL FOR DATES BABY [None]
  - TRANSIENT TACHYPNOEA OF THE NEWBORN [None]
  - TREMOR [None]
